FAERS Safety Report 25016152 (Version 1)
Quarter: 2025Q1

REPORT INFORMATION
  Report Type: Spontaneous
  Country: US (occurrence: US)
  Receive Date: 20250227
  Receipt Date: 20250227
  Transmission Date: 20250409
  Serious: Yes (Other)
  Sender: CHATTEM
  Company Number: US-OPELLA-2025OHG004988

PATIENT

DRUGS (1)
  1. GOLD BOND ORIGINAL STRENGTH [Suspect]
     Active Substance: MENTHOL
     Indication: Product used for unknown indication
     Route: 061

REACTIONS (4)
  - Pulmonary toxicity [Unknown]
  - Product delivery mechanism issue [Unknown]
  - Product use complaint [Unknown]
  - Expired product administered [Unknown]
